FAERS Safety Report 4417195-6 (Version None)
Quarter: 2004Q3

REPORT INFORMATION
  Report Type: 
  Country: None (occurrence: None)
  Receive Date: 20040806
  Receipt Date: 20040803
  Transmission Date: 20050211
  Serious: Yes (Death, Other)
  Sender: FDA-Public Use
  Company Number: PHBS2004CA10312

PATIENT
  Age: 62 Year
  Sex: Male

DRUGS (2)
  1. NEORAL [Suspect]
     Route: 048
     Dates: start: 20020501
  2. TACROLIMUS [Suspect]
     Indication: TRANSPLANT

REACTIONS (4)
  - CATATONIA [None]
  - DEATH [None]
  - NAUSEA [None]
  - NERVOUS SYSTEM DISORDER [None]
